FAERS Safety Report 4951973-X (Version None)
Quarter: 2006Q1

REPORT INFORMATION
  Report Type: 
  Country: None (occurrence: None)
  Receive Date: 20060322
  Receipt Date: 20060322
  Transmission Date: 20060701
  Serious: No
  Sender: FDA-Public Use
  Company Number: None

PATIENT
  Sex: Male

DRUGS (2)
  1. SEROQUEL [Suspect]
     Dosage: 50 MG PO AM + 150 MG HS
     Route: 048
     Dates: start: 20060201, end: 20060210
  2. HALDOL [Suspect]
     Dosage: 1 MG PRN PO
     Route: 048
     Dates: start: 20060201, end: 20060210

REACTIONS (1)
  - DYSTONIA [None]
